FAERS Safety Report 8945365 (Version 1)
Quarter: 2012Q4

REPORT INFORMATION
  Report Type: 
  Country: ES (occurrence: ES)
  Receive Date: 20121205
  Receipt Date: 20121205
  Transmission Date: 20130627
  Serious: Yes (Hospitalization, Other)
  Sender: FDA-Public Use
  Company Number: ES-009507513-1211ESP012032

PATIENT
  Age: 40 Year
  Sex: Female

DRUGS (3)
  1. REXER FLAS [Suspect]
     Route: 048
     Dates: start: 2010
  2. TRANXILIUM [Suspect]
     Dates: start: 2011
  3. METADON [Suspect]
     Dates: start: 2004

REACTIONS (5)
  - Depressed level of consciousness [Recovered/Resolved]
  - Respiratory failure [Recovered/Resolved]
  - Coma [Recovered/Resolved]
  - Acute respiratory failure [None]
  - Toxicity to various agents [None]
